FAERS Safety Report 9680159 (Version 4)
Quarter: 2014Q1

REPORT INFORMATION
  Report Type: Spontaneous
  Country: US (occurrence: US)
  Receive Date: 20131111
  Receipt Date: 20140318
  Transmission Date: 20141002
  Serious: Yes (Hospitalization)
  Sender: FDA-Public Use
  Company Number: US-BIOGENIDEC-2013BI102264

PATIENT
  Age: 23 Year
  Sex: Female

DRUGS (1)
  1. TYSABRI [Suspect]
     Indication: CROHN^S DISEASE
     Route: 042
     Dates: start: 20130227, end: 20131120

REACTIONS (7)
  - Clostridium difficile infection [Unknown]
  - Pneumonia [Unknown]
  - Probiotic therapy [Unknown]
  - Drug ineffective [Unknown]
  - Crohn^s disease [Unknown]
  - Pyrexia [Recovered/Resolved]
  - Sinusitis [Recovered/Resolved]
